FAERS Safety Report 7049100-0 (Version None)
Quarter: 2010Q4

REPORT INFORMATION
  Report Type: 
  Country: None (occurrence: None)
  Receive Date: 20101012
  Receipt Date: 20100925
  Transmission Date: 20110411
  Serious: Yes (Death)
  Sender: FDA-Public Use
  Company Number: 2009BI020516

PATIENT
  Age: 63 Year

DRUGS (6)
  1. ZEVALIN [Suspect]
     Indication: NON-HODGKIN'S LYMPHOMA
  2. ZEVALIN [Suspect]
     Indication: STEM CELL TRANSPLANT
  3. CYCLOSPORINE [Concomitant]
  4. FLUDARABINE [Concomitant]
  5. MELPHALAN HYDROCHLORIDE [Concomitant]
  6. ALEMTUZUMAB [Concomitant]

REACTIONS (3)
  - BK VIRUS INFECTION [None]
  - DRUG RESISTANCE [None]
  - ENCEPHALITIS VIRAL [None]
